FAERS Safety Report 4286307-X (Version None)
Quarter: 2004Q1

REPORT INFORMATION
  Report Type: 
  Country: None (occurrence: None)
  Receive Date: 20040129
  Receipt Date: 20030429
  Transmission Date: 20041129
  Serious: Yes (Hospitalization)
  Sender: FDA-Public Use
  Company Number: A001-002-005612

PATIENT
  Age: 91 Year
  Sex: Female
  Weight: 64 kg

DRUGS (7)
  1. ARICEPT [Suspect]
     Indication: DEMENTIA
     Dosage: 10 MG, 1 IN 1 D; ORAL (SEE IMAGE)
     Route: 048
     Dates: start: 19980101, end: 20021218
  2. ARICEPT [Suspect]
     Indication: DEMENTIA
     Dosage: 10 MG, 1 IN 1 D; ORAL (SEE IMAGE)
     Route: 048
     Dates: start: 20030101
  3. TRAZODONE HCL [Concomitant]
  4. ATIVAN (LORAZEPAM) SYNTHROID (LEVOTHYROXINE SODIUM) [Concomitant]
  5. PREDNISONE [Concomitant]
  6. IMURAN [Concomitant]
  7. ACTONEL (RISENDRONATE SODIUM) [Concomitant]

REACTIONS (2)
  - COGNITIVE DETERIORATION [None]
  - CYSTITIS [None]
